FAERS Safety Report 7046259-6 (Version None)
Quarter: 2010Q4

REPORT INFORMATION
  Report Type: 
  Country: None (occurrence: None)
  Receive Date: 20101014
  Receipt Date: 20101005
  Transmission Date: 20110411
  Serious: Yes (Hospitalization)
  Sender: FDA-Public Use
  Company Number: A0886242A

PATIENT
  Age: 48 Year
  Sex: Female

DRUGS (16)
  1. LAMICTAL [Suspect]
     Indication: HYPOMANIA
     Dosage: 200MG TWICE PER DAY
     Route: 065
     Dates: start: 20100101, end: 20100101
  2. IMMUNE GLOBULIN NOS [Suspect]
     Indication: IMMUNODEFICIENCY
     Dosage: 45G EVERY 3 WEEKS
     Route: 042
     Dates: start: 20060101, end: 20100101
  3. SEROQUEL [Concomitant]
  4. SINGULAIR [Concomitant]
  5. ALBUTEROL [Concomitant]
  6. IPRATROPIUM BROMIDE [Concomitant]
  7. ADVAIR DISKUS 100/50 [Concomitant]
  8. KLONOPIN [Concomitant]
  9. NEXIUM [Concomitant]
  10. FLONASE [Concomitant]
  11. SYNTHROID [Concomitant]
  12. PROVIGIL [Concomitant]
  13. COUMADIN [Concomitant]
  14. NIFEDIPINE [Concomitant]
  15. ACIDOPHILUS [Concomitant]
  16. COENZYME Q10 [Concomitant]

REACTIONS (6)
  - LETHARGY [None]
  - MENINGITIS VIRAL [None]
  - MUSCULOSKELETAL STIFFNESS [None]
  - NECK PAIN [None]
  - ORAL HERPES [None]
  - PYREXIA [None]
